FAERS Safety Report 24780696 (Version 1)
Quarter: 2024Q4

REPORT INFORMATION
  Report Type: Spontaneous
  Country: GB (occurrence: GB)
  Receive Date: 20241227
  Receipt Date: 20241227
  Transmission Date: 20250114
  Serious: Yes (Hospitalization, Other)
  Sender: CELLTRION
  Company Number: GB-CELLTRION INC.-2024GB032562

PATIENT

DRUGS (1)
  1. INFLIXIMAB [Suspect]
     Active Substance: INFLIXIMAB
     Indication: Crohn^s disease
     Dosage: 120 MILLIGRAM PRE FILLED PEN PK2
     Route: 058
     Dates: start: 202310

REACTIONS (3)
  - Intestinal obstruction [Unknown]
  - Bowel obstruction surgery [Unknown]
  - Product dose omission in error [Unknown]
